FAERS Safety Report 20469877 (Version 4)
Quarter: 2022Q1

REPORT INFORMATION
  Report Type: Report from Study
  Country: FR (occurrence: FR)
  Receive Date: 20220214
  Receipt Date: 20220225
  Transmission Date: 20220423
  Serious: Yes (Hospitalization, Other)
  Sender: FDA-Public Use
  Company Number: FR-SERVIER-S21014516

PATIENT

DRUGS (12)
  1. PEGASPARGASE [Suspect]
     Active Substance: PEGASPARGASE
     Indication: Acute lymphocytic leukaemia
     Dosage: 1475 IU, ON D12 AND D26
     Route: 042
     Dates: start: 20211026
  2. PEGASPARGASE [Suspect]
     Active Substance: PEGASPARGASE
     Dosage: 1475 IU, ON D12 AND D26
     Route: 042
     Dates: start: 20211109, end: 20211206
  3. MERCAPTOPURINE [Suspect]
     Active Substance: MERCAPTOPURINE
     Indication: Acute lymphocytic leukaemia
     Dosage: 37 MG, D1 TO D3 OF CONSOLIDATION
     Route: 048
     Dates: start: 20211129
  4. CYCLOPHOSPHAMIDE [Suspect]
     Active Substance: CYCLOPHOSPHAMIDE
     Indication: Acute lymphocytic leukaemia
     Dosage: 580 MG, D1 OF CONSOLIDATION
     Route: 042
     Dates: start: 20211129
  5. CYTARABINE [Suspect]
     Active Substance: CYTARABINE
     Indication: Acute lymphocytic leukaemia
     Dosage: 45 MG, D1 AND D2, THEN D3, D10 TO D13, D31 TO D34, D38 TO D41
     Route: 042
     Dates: start: 20211130
  6. CYTARABINE [Suspect]
     Active Substance: CYTARABINE
     Dosage: 25 MG, D3 AND D31
     Route: 037
     Dates: start: 20211130
  7. VINCRISTINE SULFATE [Suspect]
     Active Substance: VINCRISTINE SULFATE
     Indication: Acute lymphocytic leukaemia
     Dosage: 0.9 MG, D15, D22, D43, D50
     Route: 042
     Dates: start: 20211213, end: 20220117
  8. METHYLPREDNISOLONE ACETATE [Suspect]
     Active Substance: METHYLPREDNISOLONE ACETATE
     Indication: Acute lymphocytic leukaemia
     Dosage: 35 MG
     Route: 048
     Dates: start: 20211022, end: 20211105
  9. METHOTREXATE [Concomitant]
     Active Substance: METHOTREXATE
     Indication: Acute lymphocytic leukaemia
     Dosage: 10 MG, D3 AND D31
     Route: 037
     Dates: start: 20211130, end: 20211227
  10. HYDROCORTISONE [Concomitant]
     Active Substance: HYDROCORTISONE
     Indication: Acute lymphocytic leukaemia
     Dosage: 12.5 MG, D3 AND D31
     Route: 037
     Dates: start: 20211227, end: 20211227
  11. TN UNSPECIFIED [Concomitant]
     Indication: Antifungal prophylaxis
     Dosage: 7.5 ML, M, W, F
     Route: 048
  12. TN UNSPECIFIED [Concomitant]
     Indication: Product used for unknown indication
     Dosage: 100000 IU, 1 VIAL EVERY 3 MONTHS
     Route: 048

REACTIONS (4)
  - Osteonecrosis [Recovering/Resolving]
  - Febrile bone marrow aplasia [Not Recovered/Not Resolved]
  - Sepsis [Not Recovered/Not Resolved]
  - Hypersensitivity [Not Recovered/Not Resolved]

NARRATIVE: CASE EVENT DATE: 20211201
